FAERS Safety Report 15696352 (Version 1)
Quarter: 2018Q4

REPORT INFORMATION
  Report Type: Other
  Country: US (occurrence: US)
  Receive Date: 20181206
  Receipt Date: 20181206
  Transmission Date: 20190205
  Serious: Yes (Life-Threatening, Hospitalization, Disabling)
  Sender: FDA-Public Use
  Company Number: US-HLSUS-2018-US-000749

PATIENT
  Age: 14 Year
  Sex: Female
  Weight: 91.63 kg

DRUGS (5)
  1. LITHIUM. [Concomitant]
     Active Substance: LITHIUM
  2. HYDROXYZINE [Concomitant]
     Active Substance: HYDROXYZINE HYDROCHLORIDE
  3. LATUDA [Concomitant]
     Active Substance: LURASIDONE HYDROCHLORIDE
  4. CLOZARIL [Suspect]
     Active Substance: CLOZAPINE
     Indication: SCHIZOAFFECTIVE DISORDER BIPOLAR TYPE
     Dosage: 12.5 MG
     Route: 048
     Dates: start: 20180709
  5. PRAZOSIN. [Concomitant]
     Active Substance: PRAZOSIN

REACTIONS (5)
  - Glycosylated haemoglobin increased [None]
  - Diabetic ketoacidosis [Recovered/Resolved]
  - Diabetes mellitus [Recovered/Resolved with Sequelae]
  - Neutrophil count increased [None]
  - Hyperglycaemia [None]

NARRATIVE: CASE EVENT DATE: 20180726
